FAERS Safety Report 8923111 (Version 1)
Quarter: 2012Q4

REPORT INFORMATION
  Report Type: 
  Country: SK (occurrence: SK)
  Receive Date: 20121123
  Receipt Date: 20121123
  Transmission Date: 20130627
  Serious: Yes (Other)
  Sender: FDA-Public Use
  Company Number: SK-JNJFOC-20121109675

PATIENT
  Age: 41 Year
  Sex: Female
  Weight: 57.5 kg

DRUGS (5)
  1. REMICADE [Suspect]
     Indication: CROHN^S DISEASE
     Dosage: 5 infusions
     Route: 042
     Dates: start: 20120402, end: 20121105
  2. MESALAZIN [Concomitant]
     Indication: CROHN^S DISEASE
     Route: 065
     Dates: start: 1991
  3. HYDROCORTISONE [Concomitant]
     Indication: PREMEDICATION
     Route: 042
     Dates: start: 20121105
  4. UREA [Concomitant]
     Indication: SEBORRHOEIC DERMATITIS
     Route: 065
     Dates: start: 201208
  5. BETAMETHASONE [Concomitant]
     Indication: SEBORRHOEIC DERMATITIS
     Route: 065
     Dates: start: 201209

REACTIONS (7)
  - Tachycardia [Recovered/Resolved]
  - Hypersensitivity [Recovered/Resolved]
  - Palpitations [Recovered/Resolved]
  - Dyspnoea [Recovered/Resolved]
  - Chest pain [Recovered/Resolved]
  - Rash [Recovered/Resolved]
  - Infusion related reaction [Recovered/Resolved]
